FAERS Safety Report 25519537 (Version 1)
Quarter: 2025Q3

REPORT INFORMATION
  Report Type: Spontaneous
  Country: CA (occurrence: CA)
  Receive Date: 20250704
  Receipt Date: 20250704
  Transmission Date: 20251021
  Serious: Yes (Life-Threatening, Hospitalization, Disabling, Other)
  Sender: EXELIXIS
  Company Number: CA-IPSEN Group, Research and Development-2025-14731

PATIENT
  Age: 81 Year
  Sex: Female
  Weight: 90 kg

DRUGS (1)
  1. CABOMETYX [Suspect]
     Active Substance: CABOZANTINIB S-MALATE
     Indication: Neuroendocrine carcinoma metastatic
     Dosage: 60 MG, QD
     Route: 048
     Dates: start: 20250305, end: 20250610

REACTIONS (3)
  - Intestinal obstruction [Not Recovered/Not Resolved]
  - Malignant neoplasm progression [Not Recovered/Not Resolved]
  - Drug ineffective [Unknown]

NARRATIVE: CASE EVENT DATE: 20250610
